FAERS Safety Report 7930457-0 (Version None)
Quarter: 2011Q4

REPORT INFORMATION
  Report Type: 
  Country: None (occurrence: None)
  Receive Date: 20111121
  Receipt Date: 20111107
  Transmission Date: 20120403
  Serious: Yes (Death, Hospitalization)
  Sender: FDA-Public Use
  Company Number: US-ROCHE-1011756

PATIENT
  Sex: Female

DRUGS (4)
  1. HERCEPTIN [Suspect]
     Indication: PANCREATIC CARCINOMA METASTATIC
     Dosage: MOST RECENT DOSE PRIOR TO SAE 10/JUL/2002
     Route: 042
     Dates: start: 20020703
  2. GEMCITABINE HYDROCHLORIDE [Suspect]
     Indication: PANCREATIC CARCINOMA METASTATIC
     Dosage: DOSE 1 G/M2
     Route: 042
     Dates: start: 20020703
  3. HERCEPTIN [Suspect]
     Route: 042
  4. GEMCITABINE HYDROCHLORIDE [Suspect]
     Dosage: 1 G/M2
     Route: 042

REACTIONS (2)
  - EMBOLISM [None]
  - INFECTION [None]
